FAERS Safety Report 8964787 (Version 1)
Quarter: 2012Q4

REPORT INFORMATION
  Report Type: 
  Country: US (occurrence: US)
  Receive Date: 20121213
  Receipt Date: 20121213
  Transmission Date: 20130627
  Serious: Yes (Hospitalization, Other)
  Sender: FDA-Public Use
  Company Number: US-US-EMD SERONO, INC.-7181188

PATIENT
  Age: 63 Year
  Sex: Female
  Weight: 102 kg

DRUGS (3)
  1. REBIF [Suspect]
     Indication: MULTIPLE SCLEROSIS
     Route: 058
     Dates: start: 20110225, end: 20120105
  2. REBIF [Suspect]
     Route: 058
     Dates: start: 20120409
  3. UNSPECIFIED MEDICATIONS [Concomitant]
     Indication: PRODUCT USED FOR UNKNOWN INDICATION

REACTIONS (3)
  - Rotator cuff syndrome [Recovering/Resolving]
  - Multiple sclerosis relapse [Recovered/Resolved]
  - Fall [Recovering/Resolving]
